FAERS Safety Report 6016571-8 (Version None)
Quarter: 2008Q4

REPORT INFORMATION
  Report Type: 
  Country: None (occurrence: None)
  Receive Date: 20081218
  Receipt Date: 20081204
  Transmission Date: 20090506
  Serious: Yes (Hospitalization)
  Sender: FDA-Public Use
  Company Number: 2008002770

PATIENT
  Age: 54 Year
  Sex: Female

DRUGS (4)
  1. ERLOTINIB (ERLOTINIB) (TABLET) [Suspect]
     Indication: LUNG ADENOCARCINOMA
     Dosage: 150 MG, QD, ORAL
     Route: 048
     Dates: start: 20081007, end: 20081011
  2. VOLTAREN [Concomitant]
  3. LANSOPRAZOLE [Concomitant]
  4. DEPAS (ETIZOLAM) [Concomitant]

REACTIONS (2)
  - DIARRHOEA [None]
  - LARGE INTESTINE PERFORATION [None]
